FAERS Safety Report 13771008 (Version 2)
Quarter: 2017Q3

REPORT INFORMATION
  Report Type: Spontaneous
  Country: US (occurrence: US)
  Receive Date: 20170720
  Receipt Date: 20170731
  Transmission Date: 20171127
  Serious: No
  Sender: FDA-Public Use
  Company Number: US-AMGEN-USASP2017106756

PATIENT
  Age: 62 Year
  Sex: Female

DRUGS (7)
  1. SIMPONI ARIA [Concomitant]
     Active Substance: GOLIMUMAB
     Indication: RHEUMATOID ARTHRITIS
     Dosage: UNK
     Route: 065
  2. MELOXICAM. [Concomitant]
     Active Substance: MELOXICAM
     Dosage: UNK
  3. XELJANZ XR [Concomitant]
     Active Substance: TOFACITINIB CITRATE
     Dosage: 11 MG, QD
     Route: 048
  4. GABAPENTIN. [Suspect]
     Active Substance: GABAPENTIN
     Indication: RHEUMATOID ARTHRITIS
     Dosage: 600 MG, TID
     Route: 048
     Dates: start: 201607
  5. HUMIRA [Concomitant]
     Active Substance: ADALIMUMAB
     Dosage: UNK
     Dates: start: 201610, end: 201706
  6. METHOTREXATE. [Concomitant]
     Active Substance: METHOTREXATE
     Indication: RHEUMATOID ARTHRITIS
     Dosage: UNK
     Route: 065
  7. ENBREL [Suspect]
     Active Substance: ETANERCEPT
     Indication: RHEUMATOID ARTHRITIS
     Dosage: UNK
     Route: 065

REACTIONS (16)
  - Drug dose omission [Unknown]
  - Dysphagia [Unknown]
  - Dry skin [Unknown]
  - Dry eye [Unknown]
  - Joint stiffness [Unknown]
  - Arthralgia [Unknown]
  - Myalgia [Unknown]
  - Neuropathy peripheral [Unknown]
  - Drug ineffective [Unknown]
  - Blood pressure abnormal [Unknown]
  - Joint lock [Unknown]
  - Dry mouth [Unknown]
  - Joint swelling [Unknown]
  - Muscle spasms [Unknown]
  - Synovitis [Unknown]
  - Nodal osteoarthritis [Unknown]

NARRATIVE: CASE EVENT DATE: 2017
